FAERS Safety Report 24365527 (Version 1)
Quarter: 2024Q3

REPORT INFORMATION
  Report Type: Spontaneous
  Country: NL (occurrence: NL)
  Receive Date: 20240926
  Receipt Date: 20240926
  Transmission Date: 20241017
  Serious: Yes (Life-Threatening, Hospitalization, Disabling)
  Sender: AUROBINDO
  Company Number: NL-LRB-01003454

PATIENT
  Age: 30 Year
  Sex: Male
  Weight: 70 kg

DRUGS (1)
  1. OLANZAPINE [Suspect]
     Active Substance: OLANZAPINE
     Indication: Psychotic disorder
     Dosage: 5 MILLIGRAM, ONCE A DAY (1X PER DAG 1 STUK)
     Route: 065
     Dates: start: 20240820, end: 20240821

REACTIONS (1)
  - Catatonia [Recovered/Resolved]
